FAERS Safety Report 23051030 (Version 3)
Quarter: 2023Q4

REPORT INFORMATION
  Report Type: Spontaneous
  Country: US (occurrence: US)
  Receive Date: 20231010
  Receipt Date: 20231116
  Transmission Date: 20240110
  Serious: No
  Sender: FDA-Public Use
  Company Number: US-SA-SAC20231005000342

PATIENT
  Age: 9 Year
  Sex: Male

DRUGS (2)
  1. DUPIXENT [Suspect]
     Active Substance: DUPILUMAB
     Indication: Dermatitis atopic
     Dosage: 2 DF, 1X
     Route: 058
     Dates: start: 20230814, end: 20230814
  2. DUPIXENT [Suspect]
     Active Substance: DUPILUMAB
     Dosage: 1 DF, Q4W
     Route: 058
     Dates: start: 2023

REACTIONS (3)
  - Cough [Unknown]
  - Rhinorrhoea [Unknown]
  - Sneezing [Unknown]

NARRATIVE: CASE EVENT DATE: 20230101
